FAERS Safety Report 9494046 (Version 1)
Quarter: 2013Q3

REPORT INFORMATION
  Report Type: Spontaneous
  Country: US (occurrence: None)
  Receive Date: 20130829
  Receipt Date: 20130829
  Transmission Date: 20140515
  Serious: Yes (Disabling)
  Sender: FDA-Public Use
  Company Number: None

PATIENT
  Age: 45 Year
  Sex: Female
  Weight: 107.05 kg

DRUGS (1)
  1. LEVAQUIN [Suspect]

REACTIONS (3)
  - Hypoaesthesia [None]
  - Burning sensation [None]
  - Paraesthesia [None]
